FAERS Safety Report 9835915 (Version 1)
Quarter: 2014Q1

REPORT INFORMATION
  Report Type: Spontaneous
  Country: US (occurrence: US)
  Receive Date: 20140122
  Receipt Date: 20140122
  Transmission Date: 20141002
  Serious: Yes (Other)
  Sender: FDA-Public Use
  Company Number: PHEH2014US001171

PATIENT
  Sex: Female

DRUGS (10)
  1. GLEEVEC [Suspect]
     Indication: CHRONIC MYELOID LEUKAEMIA
     Dosage: 0.5 DF, QD (HALF TAB QD)
  2. PREVACID 24HR 15MG [Suspect]
     Dosage: UNK UKN, UNK
  3. PROTONIX [Suspect]
     Dosage: UNK UKN, UNK
  4. NEXIUM 1-2-3 [Suspect]
     Dosage: UNK UKN, UNK
  5. METOPROLOL [Concomitant]
     Indication: ATRIAL FIBRILLATION
     Dosage: UNK UKN, UNK
  6. LORAZEPAM [Concomitant]
     Dosage: UNK UKN, UNK
  7. VITAMIN D3 [Concomitant]
     Dosage: 1000 IU, UNK
  8. VITAMIN B12 [Concomitant]
     Dosage: 3000 UG, UNK
  9. PROTON PUMP INHIBITORS [Concomitant]
     Dosage: UNK UKN, UNK
  10. MAGNESIUM [Concomitant]
     Indication: CONSTIPATION
     Dosage: 250 MG, 2 TO 3 TIMES A WEEK

REACTIONS (8)
  - Atrial fibrillation [Unknown]
  - Nausea [Unknown]
  - Weight decreased [Unknown]
  - Dyskinesia [Unknown]
  - Wrong technique in drug usage process [Unknown]
  - Drug intolerance [Unknown]
  - Tendonitis [Unknown]
  - Constipation [Unknown]
